FAERS Safety Report 8557520-8 (Version None)
Quarter: 2012Q3

REPORT INFORMATION
  Report Type: 
  Country: None (occurrence: None)
  Receive Date: 20120801
  Receipt Date: 20120723
  Transmission Date: 20120928
  Serious: Yes (Other)
  Sender: FDA-Public Use
  Company Number: GB-ASTRAZENECA-2012SE52129

PATIENT
  Age: 41 Year
  Sex: Male
  Weight: 74.4 kg

DRUGS (4)
  1. ANTISPASMODIS [Concomitant]
  2. OMEPRAZOLE (PRISOLEC) [Suspect]
     Indication: DUODENAL ULCER
     Route: 048
     Dates: start: 20120614, end: 20120712
  3. ACETAMINOPHEN [Concomitant]
     Indication: PAIN
  4. IBUPROFEN [Concomitant]

REACTIONS (1)
  - ERECTILE DYSFUNCTION [None]
